FAERS Safety Report 11654053 (Version 3)
Quarter: 2016Q3

REPORT INFORMATION
  Report Type: Report from Study
  Country: CO (occurrence: CO)
  Receive Date: 20151023
  Receipt Date: 20160811
  Transmission Date: 20161109
  Serious: Yes (Hospitalization, Other)
  Sender: FDA-Public Use
  Company Number: CO-ROCHE-1649382

PATIENT
  Age: 77 Year
  Sex: Female

DRUGS (1)
  1. RITUXIMAB [Suspect]
     Active Substance: RITUXIMAB
     Indication: NON-HODGKIN^S LYMPHOMA
     Route: 042
     Dates: start: 20150311, end: 20150916

REACTIONS (2)
  - Mass [Recovered/Resolved with Sequelae]
  - Cardiac hypertrophy [Recovered/Resolved with Sequelae]

NARRATIVE: CASE EVENT DATE: 20160708
